FAERS Safety Report 4757721-0 (Version None)
Quarter: 2005Q3

REPORT INFORMATION
  Report Type: 
  Country: None (occurrence: None)
  Receive Date: 20050830
  Receipt Date: 20050816
  Transmission Date: 20060218
  Serious: Yes (Other)
  Sender: FDA-Public Use
  Company Number: S05-CAN-03093-01

PATIENT
  Sex: Male

DRUGS (3)
  1. CELEXA [Suspect]
     Dosage: 40 MG QD PO
     Route: 048
     Dates: start: 20030101
  2. MORPHINE [Concomitant]
  3. REMERON [Concomitant]

REACTIONS (3)
  - INSOMNIA [None]
  - MUSCLE TWITCHING [None]
  - PLEURAL EFFUSION [None]
